FAERS Safety Report 9143808 (Version 3)
Quarter: 2013Q2

REPORT INFORMATION
  Report Type: Spontaneous
  Country: NL (occurrence: NL)
  Receive Date: 20130306
  Receipt Date: 20130515
  Transmission Date: 20140414
  Serious: Yes (Other)
  Sender: FDA-Public Use
  Company Number: NL-TEVA-388995ISR

PATIENT
  Age: 92 Year
  Sex: Male

DRUGS (5)
  1. HALOPERIDOL TEVA [Suspect]
     Dosage: 1 MILLIGRAM DAILY;
     Dates: start: 20130213, end: 20130213
  2. ACETYL CARD DISP T 80 MG [Concomitant]
  3. FUROSEMIDE TABL 20 MG [Concomitant]
  4. LISINOPRIL TABL 5 MG [Concomitant]
  5. OMEPRAZOL CAPS MSR 20 MG [Concomitant]

REACTIONS (2)
  - Depressed level of consciousness [Recovered/Resolved]
  - Somnolence [Recovered/Resolved]
